FAERS Safety Report 23297270 (Version 2)
Quarter: 2024Q1

REPORT INFORMATION
  Report Type: Spontaneous
  Country: US (occurrence: US)
  Receive Date: 20231214
  Receipt Date: 20240115
  Transmission Date: 20240410
  Serious: No
  Sender: FDA-Public Use
  Company Number: US-JNJFOC-20231212882

PATIENT
  Sex: Male

DRUGS (1)
  1. MOTRIN INFANTS [Suspect]
     Active Substance: IBUPROFEN
     Indication: Teething
     Route: 065

REACTIONS (2)
  - Poor quality product administered [Unknown]
  - Product contamination physical [Unknown]
